FAERS Safety Report 7892926-1 (Version None)
Quarter: 2011Q4

REPORT INFORMATION
  Report Type: 
  Country: None (occurrence: None)
  Receive Date: 20111104
  Receipt Date: 20111030
  Transmission Date: 20120403
  Serious: Yes (Death)
  Sender: FDA-Public Use
  Company Number: NZ-B.I. PHARMACEUTICALS,INC./RIDGEFIELD-2011-AU-01007AU

PATIENT
  Sex: Female

DRUGS (5)
  1. PRADAXA [Suspect]
     Indication: ATRIAL FIBRILLATION
     Dosage: 300 MG
     Dates: start: 20110616, end: 20110808
  2. CANDESARTAN CILEXETIL [Concomitant]
     Dosage: 32 MG
     Dates: start: 20110427, end: 20110809
  3. METOPROLOL TARTRATE SR [Concomitant]
     Dosage: 200 MG
     Dates: start: 20110427, end: 20110809
  4. SIMVASTATIN [Concomitant]
     Dosage: 40 MG
     Dates: start: 20110427, end: 20110809
  5. BENDROFLUAZIDE [Concomitant]
     Dosage: 2.5 MG
     Dates: start: 20101101, end: 20110809

REACTIONS (1)
  - CEREBROVASCULAR ACCIDENT [None]
